FAERS Safety Report 7404333-6 (Version None)
Quarter: 2011Q2

REPORT INFORMATION
  Report Type: 
  Country: None (occurrence: None)
  Receive Date: 20110408
  Receipt Date: 20110329
  Transmission Date: 20111010
  Serious: Yes (Hospitalization)
  Sender: FDA-Public Use
  Company Number: FR-BAXTER-2011BH004854

PATIENT
  Age: 13 Year
  Weight: 41 kg

DRUGS (6)
  1. ADVATE [Suspect]
     Route: 065
     Dates: start: 20110126, end: 20110126
  2. ADVATE [Suspect]
     Route: 065
     Dates: start: 20110127, end: 20110127
  3. ADVATE [Suspect]
     Route: 065
     Dates: start: 20110101, end: 20110101
  4. CORTICOSTEROIDS [Concomitant]
     Indication: LIMB INJURY
     Route: 042
     Dates: start: 20110125
  5. ADVATE [Suspect]
     Indication: HAEMOPHILIA
     Route: 065
     Dates: start: 20110125, end: 20110125
  6. ADVATE [Suspect]
     Route: 065
     Dates: start: 20110126, end: 20110126

REACTIONS (2)
  - DRUG ADMINISTRATION ERROR [None]
  - DRUG INEFFECTIVE [None]
